FAERS Safety Report 19243358 (Version 2)
Quarter: 2021Q2

REPORT INFORMATION
  Report Type: Report from Study
  Country: BR (occurrence: BR)
  Receive Date: 20210511
  Receipt Date: 20210511
  Transmission Date: 20210717
  Serious: Yes (Other)
  Sender: FDA-Public Use
  Company Number: NVSC2019BR017468

PATIENT
  Age: 58 Year
  Sex: Female
  Weight: 67 kg

DRUGS (13)
  1. METHOTREXATE. [Concomitant]
     Active Substance: METHOTREXATE
     Indication: PRODUCT USED FOR UNKNOWN INDICATION
     Dosage: UNK
     Route: 065
  2. COSENTYX [Suspect]
     Active Substance: SECUKINUMAB
     Dosage: 150 MG/ML, QMO
     Route: 058
     Dates: start: 20191012
  3. COSENTYX [Suspect]
     Active Substance: SECUKINUMAB
     Dosage: 300 MG, QMO
     Route: 058
  4. COSENTYX [Suspect]
     Active Substance: SECUKINUMAB
     Dosage: UNK
     Route: 065
     Dates: start: 20210422
  5. COSENTYX [Suspect]
     Active Substance: SECUKINUMAB
     Dosage: UNK
     Route: 065
     Dates: start: 20191228
  6. NIMESULID [Concomitant]
     Active Substance: NIMESULIDE
     Indication: PRODUCT USED FOR UNKNOWN INDICATION
     Dosage: UNK
     Route: 065
  7. COSENTYX [Suspect]
     Active Substance: SECUKINUMAB
     Dosage: UNK
     Route: 065
     Dates: start: 20191108
  8. COSENTYX [Suspect]
     Active Substance: SECUKINUMAB
     Dosage: 150 UNK
     Route: 065
     Dates: start: 20191119
  9. NAPROXEN. [Concomitant]
     Active Substance: NAPROXEN
     Indication: PRODUCT USED FOR UNKNOWN INDICATION
     Dosage: UNK UNK, QD
     Route: 065
  10. METFORMIN [Concomitant]
     Active Substance: METFORMIN HYDROCHLORIDE
     Indication: HYPERTENSION
  11. COSENTYX [Suspect]
     Active Substance: SECUKINUMAB
     Indication: PSORIATIC ARTHROPATHY
     Dosage: UNK
     Route: 065
     Dates: start: 201910
  12. COSENTYX [Suspect]
     Active Substance: SECUKINUMAB
     Dosage: 150 MG/ML, QMO
     Route: 058
     Dates: start: 20191019
  13. METFORMIN [Concomitant]
     Active Substance: METFORMIN HYDROCHLORIDE
     Indication: DIABETES MELLITUS
     Dosage: UNK, QD
     Route: 048
     Dates: start: 2010

REACTIONS (46)
  - Device malfunction [Not Recovered/Not Resolved]
  - Ocular discomfort [Recovering/Resolving]
  - Crepitations [Unknown]
  - Spinal disorder [Recovered/Resolved]
  - Arrhythmia [Recovered/Resolved]
  - Stomatitis [Recovering/Resolving]
  - Pyrexia [Recovered/Resolved]
  - Nasal congestion [Recovered/Resolved]
  - Pain in extremity [Unknown]
  - Torticollis [Unknown]
  - Symptom recurrence [Unknown]
  - Arthralgia [Not Recovered/Not Resolved]
  - Cough [Not Recovered/Not Resolved]
  - Dyspnoea [Not Recovered/Not Resolved]
  - Tendon disorder [Recovering/Resolving]
  - Back pain [Recovered/Resolved]
  - Influenza like illness [Recovering/Resolving]
  - Product dose omission issue [Unknown]
  - Viral infection [Not Recovered/Not Resolved]
  - Malaise [Recovered/Resolved]
  - Chest discomfort [Not Recovered/Not Resolved]
  - Nasal dryness [Recovered/Resolved]
  - Eye discharge [Not Recovered/Not Resolved]
  - Hyperhidrosis [Recovered/Resolved]
  - Wrong technique in product usage process [Unknown]
  - Decreased immune responsiveness [Unknown]
  - Headache [Recovered/Resolved]
  - Urine abnormality [Recovered/Resolved]
  - Eye irritation [Not Recovered/Not Resolved]
  - Dry skin [Recovering/Resolving]
  - Rhinorrhoea [Recovered/Resolved]
  - Limb injury [Unknown]
  - Paraesthesia [Not Recovered/Not Resolved]
  - Palpitations [Recovered/Resolved]
  - Respiratory disorder [Not Recovered/Not Resolved]
  - Pain [Not Recovered/Not Resolved]
  - Influenza [Recovering/Resolving]
  - Bone pain [Unknown]
  - Skin lesion [Unknown]
  - COVID-19 [Unknown]
  - Ear pain [Recovered/Resolved]
  - Secretion discharge [Unknown]
  - Limb discomfort [Not Recovered/Not Resolved]
  - Nail injury [Unknown]
  - Tooth disorder [Unknown]
  - Myalgia [Recovering/Resolving]

NARRATIVE: CASE EVENT DATE: 20191018
